FAERS Safety Report 12717408 (Version 2)
Quarter: 2017Q3

REPORT INFORMATION
  Report Type: Spontaneous
  Country: CN (occurrence: CN)
  Receive Date: 20160906
  Receipt Date: 20170817
  Transmission Date: 20171127
  Serious: Yes (Death, Life-Threatening, Other)
  Sender: FDA-Public Use
  Company Number: CN-009507513-1609CHN001242

PATIENT
  Age: 44 Year
  Sex: Female

DRUGS (7)
  1. IMIPENEM AND CILASTATIN [Suspect]
     Active Substance: CILASTATIN SODIUM\IMIPENEM
  2. CYCLOSPORINE. [Suspect]
     Active Substance: CYCLOSPORINE
     Indication: APLASTIC ANAEMIA
  3. VANCOMYCIN [Concomitant]
     Active Substance: VANCOMYCIN
  4. FOSFOMYCIN [Suspect]
     Active Substance: FOSFOMYCIN
     Dosage: 8 G, Q12H
     Route: 042
  5. TIGECYCLINE. [Suspect]
     Active Substance: TIGECYCLINE
     Indication: APLASTIC ANAEMIA
     Dosage: 50 MG, Q12H
     Route: 042
  6. AMIKACIN [Suspect]
     Active Substance: AMIKACIN
     Dosage: 0.4 G, QD
     Route: 042
  7. TESTOSTERONE UNDECANOATE [Concomitant]
     Active Substance: TESTOSTERONE UNDECANOATE
     Indication: APLASTIC ANAEMIA

REACTIONS (5)
  - Pathogen resistance [Fatal]
  - Multiple-drug resistance [Fatal]
  - Haemoptysis [Fatal]
  - Klebsiella infection [Fatal]
  - Coma [Fatal]
